FAERS Safety Report 4833468-7 (Version None)
Quarter: 2005Q4

REPORT INFORMATION
  Report Type: 
  Country: None (occurrence: None)
  Receive Date: 20051114
  Receipt Date: 20051102
  Transmission Date: 20060501
  Serious: Yes (Hospitalization, Other)
  Sender: FDA-Public Use
  Company Number: 2005062220

PATIENT
  Age: 69 Year
  Sex: Female
  Weight: 116.5744 kg

DRUGS (13)
  1. BEXTRA [Suspect]
     Indication: ARTHROPATHY
     Dosage: 10 MG (10 MG,1 IN 1 D), UNKNOWN
     Route: 065
     Dates: start: 20040101
  2. VIOXX [Concomitant]
  3. POTASSIUM CHLORIDE [Concomitant]
  4. ZYRTEC [Concomitant]
  5. ALPRAZOLAM [Concomitant]
  6. HUMULIN (INSULIN HUMAN, INSULIN ISOPHANE, HUMAN BIOSYNTHETIC) [Concomitant]
  7. LASIX [Concomitant]
  8. PREMARIN [Concomitant]
  9. AVANDAMET (METFORMIN HYDROCHLORIDE, ROSIGLITAZONE) [Concomitant]
  10. TENORMIN [Concomitant]
  11. DIOVAN HCT [Concomitant]
  12. CLONIDINE [Concomitant]
  13. MECLIZINE [Concomitant]

REACTIONS (26)
  - AMNESIA [None]
  - ARRHYTHMIA [None]
  - ATRIOVENTRICULAR BLOCK SECOND DEGREE [None]
  - BLOOD PRESSURE SYSTOLIC INCREASED [None]
  - COUGH [None]
  - DIZZINESS [None]
  - FALL [None]
  - FLUCTUANCE [None]
  - HYPERHIDROSIS [None]
  - JOINT INJURY [None]
  - LOSS OF CONSCIOUSNESS [None]
  - MASS [None]
  - MEASLES [None]
  - MENOPAUSE [None]
  - MYOCARDIAL INFARCTION [None]
  - OEDEMA PERIPHERAL [None]
  - PAIN [None]
  - POSTOPERATIVE WOUND INFECTION [None]
  - RESPIRATORY RATE INCREASED [None]
  - SICK SINUS SYNDROME [None]
  - SINUS BRADYCARDIA [None]
  - SKIN HAEMORRHAGE [None]
  - SYNCOPE [None]
  - TENDERNESS [None]
  - TREATMENT NONCOMPLIANCE [None]
  - URINARY TRACT INFECTION [None]
